FAERS Safety Report 6129733-6 (Version None)
Quarter: 2009Q1

REPORT INFORMATION
  Report Type: 
  Country: None (occurrence: None)
  Receive Date: 20090324
  Receipt Date: 20090314
  Transmission Date: 20090719
  Serious: Yes (Hospitalization)
  Sender: FDA-Public Use
  Company Number: A0774662A

PATIENT
  Age: 71 Year
  Sex: Male
  Weight: 69.4 kg

DRUGS (10)
  1. MELPHALAN [Suspect]
     Indication: MULTIPLE MYELOMA
     Dosage: 16MG PER DAY
     Route: 048
     Dates: start: 20081216, end: 20090130
  2. VELCADE [Suspect]
     Indication: MULTIPLE MYELOMA
     Dosage: 1.3MGM2 PER DAY
     Route: 042
     Dates: start: 20081216, end: 20090224
  3. PREDNISONE [Suspect]
     Indication: MULTIPLE MYELOMA
     Dosage: 110MG PER DAY
     Route: 048
     Dates: start: 20081216, end: 20090130
  4. ASPIRIN [Concomitant]
  5. LIPITOR [Concomitant]
  6. LUMIGAN [Concomitant]
  7. COSOPT [Concomitant]
  8. GLUCOPHAGE [Concomitant]
  9. LOPRESSOR [Concomitant]
  10. NIACIN [Concomitant]

REACTIONS (1)
  - DYSPNOEA [None]
